FAERS Safety Report 13778340 (Version 1)
Quarter: 2017Q3

REPORT INFORMATION
  Report Type: Spontaneous
  Country: US (occurrence: US)
  Receive Date: 20170721
  Receipt Date: 20170721
  Transmission Date: 20171127
  Serious: No
  Sender: FDA-Public Use
  Company Number: US-TEVA-777924ACC

PATIENT

DRUGS (1)
  1. AMPHETAMINE W/DEXTROAMPHETAMINE [Suspect]
     Active Substance: AMPHETAMINE SULFATE\DEXTROAMPHETAMINE

REACTIONS (5)
  - Feeling abnormal [Unknown]
  - Disturbance in attention [Unknown]
  - Irritability [Unknown]
  - Drug ineffective [Unknown]
  - Fatigue [Unknown]
